FAERS Safety Report 5188717-5 (Version None)
Quarter: 2006Q4

REPORT INFORMATION
  Report Type: 
  Country: None (occurrence: None)
  Receive Date: 20061215
  Receipt Date: 20061205
  Transmission Date: 20070319
  Serious: Yes (Other)
  Sender: FDA-Public Use
  Company Number: 2006150910

PATIENT
  Age: 75 Year
  Sex: Male
  Weight: 99.7913 kg

DRUGS (9)
  1. TIKOSYN [Suspect]
     Indication: ATRIAL FIBRILLATION
     Dosage: 0.5 MG (0.25 MG, BID), UNKNOWN
     Dates: start: 20060101
  2. NORVASC [Concomitant]
  3. DIOVAN [Concomitant]
  4. LISINOPRIL [Concomitant]
  5. ASPIRIN [Concomitant]
  6. POTASSIUM (POTASSIUM) [Concomitant]
  7. TOPROL-XL [Concomitant]
  8. WARFARIN SODIUM [Concomitant]
  9. GLYBURIDE [Concomitant]

REACTIONS (3)
  - COLONIC POLYP [None]
  - DYSPNOEA [None]
  - HAEMOGLOBIN DECREASED [None]
